FAERS Safety Report 4595687-7 (Version None)
Quarter: 2005Q1

REPORT INFORMATION
  Report Type: 
  Country: None (occurrence: None)
  Receive Date: 20050223
  Receipt Date: 20050223
  Transmission Date: 20050727
  Serious: Yes (Hospitalization)
  Sender: FDA-Public Use
  Company Number: None

PATIENT
  Age: 47 Year
  Sex: Male
  Weight: 105 kg

DRUGS (4)
  1. REMICADE [Suspect]
     Indication: PSORIATIC ARTHROPATHY
     Dosage: 600 MG IV Q 4 WKS
     Route: 042
     Dates: start: 20020826
  2. REMICADE [Suspect]
     Indication: RHEUMATOID ARTHRITIS
     Dosage: 600 MG IV Q 4 WKS
     Route: 042
     Dates: start: 20020826
  3. METHOTREXATE [Suspect]
     Indication: PSORIATIC ARTHROPATHY
     Dosage: 17.5 MG PO Q WK
     Route: 048
     Dates: start: 19980601
  4. METHOTREXATE [Suspect]
     Indication: RHEUMATOID ARTHRITIS
     Dosage: 17.5 MG PO Q WK
     Route: 048
     Dates: start: 19980601

REACTIONS (10)
  - CHROMATURIA [None]
  - ERYTHEMA [None]
  - GLOSSODYNIA [None]
  - HYPERHIDROSIS [None]
  - LIP PAIN [None]
  - LOCAL SWELLING [None]
  - OEDEMA PERIPHERAL [None]
  - PRURITUS [None]
  - RASH GENERALISED [None]
  - SWELLING FACE [None]
